FAERS Safety Report 22590964 (Version 2)
Quarter: 2023Q2

REPORT INFORMATION
  Report Type: Spontaneous
  Country: JP (occurrence: JP)
  Receive Date: 20230612
  Receipt Date: 20230627
  Transmission Date: 20230722
  Serious: Yes (Hospitalization, Other)
  Sender: FDA-Public Use
  Company Number: JP-NOVOPROD-1074227

PATIENT
  Age: 19 Year
  Sex: Male
  Weight: 49 kg

DRUGS (6)
  1. SOGROYA [Suspect]
     Active Substance: SOMAPACITAN-BECO
     Indication: Hypopituitarism
     Dosage: 2.5 MG, QW
     Route: 058
     Dates: start: 202303, end: 20230524
  2. GONATROPIN [Concomitant]
     Indication: Hypopituitarism
     Dosage: 500 IU, QW
     Route: 058
     Dates: start: 201908
  3. FOLLITROPIN ALFA [Concomitant]
     Active Substance: FOLLITROPIN ALFA
     Indication: Hypopituitarism
     Dosage: 75 IU, BIW
     Route: 058
     Dates: start: 201908
  4. LEVOTHYROXINE SODIUM [Concomitant]
     Active Substance: LEVOTHYROXINE SODIUM
     Indication: Hypopituitarism
     Dosage: 75 ?G, QD
     Route: 048
     Dates: start: 201805
  5. CORTRIL [Concomitant]
     Active Substance: HYDROCORTISONE
     Indication: Hypopituitarism
     Dosage: 12.5 MG, QD
     Route: 048
     Dates: start: 201805
  6. DESMOPRESSIN ACETATE [Concomitant]
     Active Substance: DESMOPRESSIN ACETATE
     Indication: Hypopituitarism
     Dosage: 120 ?G, QD
     Route: 060
     Dates: start: 201805

REACTIONS (1)
  - Germ cell cancer [Not Recovered/Not Resolved]

NARRATIVE: CASE EVENT DATE: 20230524
